FAERS Safety Report 7576396-9 (Version None)
Quarter: 2011Q2

REPORT INFORMATION
  Report Type: 
  Country: None (occurrence: None)
  Receive Date: 20110628
  Receipt Date: 20110617
  Transmission Date: 20111010
  Serious: Yes (Hospitalization, Other)
  Sender: FDA-Public Use
  Company Number: US-BAYER-201024777NA

PATIENT
  Age: 39 Year
  Sex: Female
  Weight: 91 kg

DRUGS (4)
  1. JUNEL FE [Concomitant]
     Dosage: UNK
     Dates: start: 20080616
  2. YAZ [Suspect]
     Indication: ORAL CONTRACEPTION
  3. FERROUS SULFATE TAB [Concomitant]
  4. YAZ [Suspect]
     Indication: ANAEMIA
     Dosage: UNK
     Route: 048
     Dates: start: 20040101, end: 20081001

REACTIONS (5)
  - CHOLECYSTITIS ACUTE [None]
  - ABDOMINAL PAIN [None]
  - CHOLELITHIASIS [None]
  - CHOLECYSTECTOMY [None]
  - PANCREATITIS [None]
